FAERS Safety Report 23674366 (Version 1)
Quarter: 2024Q1

REPORT INFORMATION
  Report Type: Spontaneous
  Country: CN (occurrence: None)
  Receive Date: 20240326
  Receipt Date: 20240326
  Transmission Date: 20240409
  Serious: Yes (Other)
  Sender: FDA-Public Use
  Company Number: 2024A068710

PATIENT
  Age: 20088 Day
  Sex: Male
  Weight: 70 kg

DRUGS (2)
  1. BUDESONIDE\FORMOTEROL FUMARATE [Suspect]
     Active Substance: BUDESONIDE\FORMOTEROL FUMARATE
     Indication: Bronchitis
     Dosage: 160.00UG,TWO TIMES A DAY
     Route: 055
     Dates: start: 20240312, end: 20240314
  2. MONTELUKAST SODIUM [Concomitant]
     Active Substance: MONTELUKAST SODIUM
     Indication: Bronchitis
     Route: 048
     Dates: start: 20240312, end: 20240313

REACTIONS (3)
  - Drug eruption [Unknown]
  - Infection [Unknown]
  - Condition aggravated [Unknown]
